FAERS Safety Report 4531388-9 (Version None)
Quarter: 2004Q4

REPORT INFORMATION
  Report Type: 
  Country: None (occurrence: None)
  Receive Date: 20041216
  Receipt Date: 20041124
  Transmission Date: 20050328
  Serious: Yes (Disabling, Other)
  Sender: FDA-Public Use
  Company Number: USA041184609

PATIENT
  Age: 62 Year
  Sex: Male

DRUGS (1)
  1. XIGRIS [Suspect]
     Indication: SEPSIS
     Dates: start: 20040801

REACTIONS (4)
  - ABASIA [None]
  - CARDIAC VALVE DISEASE [None]
  - MUSCLE ATROPHY [None]
  - MUSCLE TIGHTNESS [None]
